FAERS Safety Report 8828361 (Version 1)
Quarter: 2012Q4

REPORT INFORMATION
  Report Type: 
  Country: JP (occurrence: JP)
  Receive Date: 20121005
  Receipt Date: 20121005
  Transmission Date: 20130627
  Serious: Yes (Life-Threatening, Other)
  Sender: FDA-Public Use
  Company Number: JP-ELI_LILLY_AND_COMPANY-JP201207006973

PATIENT
  Age: 43 Year
  Sex: Female
  Weight: 53 kg

DRUGS (17)
  1. HUMALOG 25% LISPRO, 75% NPL [Suspect]
     Indication: DIABETES MELLITUS
     Dosage: UNK, 10 to 16 units/daily
     Route: 058
     Dates: start: 20120622
  2. HUMALOG 25% LISPRO, 75% NPL [Suspect]
     Dosage: 10 DF, UNK
     Route: 058
     Dates: start: 20120724, end: 20120724
  3. HUMALOG 25% LISPRO, 75% NPL [Suspect]
     Dosage: UNK, 200 to 300 units
     Dates: start: 20120724, end: 20120724
  4. LASIX                              /00032601/ [Concomitant]
     Indication: OEDEMA
     Dosage: 1 DF, qd
  5. NEUROVITAN                         /00280501/ [Concomitant]
     Indication: HYPOVITAMINOSIS
     Dosage: 1 DF, tid
  6. CAMOSTAT MESILATE [Concomitant]
     Indication: PANCREATITIS
     Dosage: 2 DF, tid
  7. BEZATATE [Concomitant]
     Indication: HYPERLIPIDAEMIA
     Dosage: 1 DF, bid
  8. FOLIAMIN [Concomitant]
     Indication: HYPOVITAMINOSIS
     Dosage: 1 DF, bid
  9. OMEPRAL /00661201/ [Concomitant]
     Indication: GASTROOESOPHAGEAL REFLUX DISEASE
     Dosage: 1 DF, qd
  10. BERIZYM                            /00517401/ [Concomitant]
     Indication: PANCREATITIS CHRONIC
     Dosage: 1 g, tid
  11. SOLANAX [Concomitant]
     Indication: PSYCHOSOMATIC DISEASE
     Dosage: 3 DF, tid
  12. MYSLEE [Concomitant]
     Indication: INSOMNIA
     Dosage: 1 DF, qd
  13. BENZALIN [Concomitant]
     Indication: INSOMNIA
     Dosage: 3 DF, qd
  14. HIRNAMIN                           /00038601/ [Concomitant]
     Indication: INSOMNIA
     Dosage: 1 DF, qd
  15. PYRETHIA                           /00033002/ [Concomitant]
     Indication: INSOMNIA
     Dosage: 1 DF, qd
  16. GOODMIN [Concomitant]
     Indication: INSOMNIA
     Dosage: 1 DF, qd
  17. DEPAS [Concomitant]
     Indication: INSOMNIA
     Dosage: 3 DF, qd

REACTIONS (3)
  - Hypoglycaemia [Recovered/Resolved]
  - Suicide attempt [Unknown]
  - Intentional overdose [Unknown]
